FAERS Safety Report 5918905-9 (Version None)
Quarter: 2008Q4

REPORT INFORMATION
  Report Type: 
  Country: None (occurrence: None)
  Receive Date: 20081015
  Receipt Date: 20081010
  Transmission Date: 20090506
  Serious: Yes (Hospitalization, Other)
  Sender: FDA-Public Use
  Company Number: TR-AVENTIS-200819561GDDC

PATIENT
  Age: 52 Year
  Sex: Female

DRUGS (6)
  1. GLIMEPIRIDE [Suspect]
     Route: 048
     Dates: start: 20060201
  2. ECOPIRIN [Concomitant]
  3. GLUCOPHAGE [Concomitant]
  4. DELIX PLUS [Concomitant]
  5. NORVASC [Concomitant]
  6. CALCIUM-D-SANDOZ [Concomitant]

REACTIONS (3)
  - ARTERIOSCLEROSIS CORONARY ARTERY [None]
  - BACK PAIN [None]
  - CORONARY ARTERY DISEASE [None]
